FAERS Safety Report 9661023 (Version 1)
Quarter: 2013Q4

REPORT INFORMATION
  Report Type: Spontaneous
  Country: US (occurrence: US)
  Receive Date: 20131031
  Receipt Date: 20131031
  Transmission Date: 20140711
  Serious: Yes (Hospitalization)
  Sender: FDA-Public Use
  Company Number: US-GLAXOSMITHKLINE-A1047146A

PATIENT
  Age: 54 Year
  Sex: Female

DRUGS (7)
  1. VENTOLIN [Suspect]
     Indication: ASTHMA
     Dosage: 2PUFF AS REQUIRED
     Route: 055
  2. URSODIOL [Concomitant]
  3. PREVACID [Concomitant]
  4. LISINOPRIL [Concomitant]
  5. VERAPAMIL [Concomitant]
  6. Z-PAK [Concomitant]
  7. PREDNISONE [Concomitant]

REACTIONS (2)
  - Dyspnoea [Unknown]
  - Nasopharyngitis [Unknown]
